FAERS Safety Report 25994945 (Version 1)
Quarter: 2025Q4

REPORT INFORMATION
  Report Type: Spontaneous
  Country: US (occurrence: US)
  Receive Date: 20251104
  Receipt Date: 20251104
  Transmission Date: 20260117
  Serious: No
  Sender: Onesource Specialty Pharma
  Company Number: US-STRIDES ARCOLAB LIMITED-2025-ST-000707

PATIENT
  Age: 23 Year
  Sex: Female
  Weight: 70 kg

DRUGS (5)
  1. BUPIVACAINE [Suspect]
     Active Substance: BUPIVACAINE
     Indication: Spinal anaesthesia
     Dosage: 13.5 MILLIGRAM INJECTION
     Route: 065
  2. FENTANYL [Suspect]
     Active Substance: FENTANYL
     Indication: Spinal anaesthesia
     Dosage: 150 MICROGRAM
     Route: 065
  3. MORPHINE [Suspect]
     Active Substance: MORPHINE
     Indication: Spinal anaesthesia
     Dosage: 150 MICROGRAM
     Route: 065
  4. PHENYLEPHRINE [Suspect]
     Active Substance: PHENYLEPHRINE
     Indication: Blood pressure abnormal
     Dosage: 0.3 MICROGRAM/KILOGRAM, QMINUTE
     Route: 065
  5. ESMOLOL [Suspect]
     Active Substance: ESMOLOL HYDROCHLORIDE
     Indication: Blood pressure abnormal
     Dosage: 10 MILLIGRAM
     Route: 042

REACTIONS (1)
  - Maternal exposure during pregnancy [Unknown]
